FAERS Safety Report 9119295 (Version 4)
Quarter: 2014Q1

REPORT INFORMATION
  Report Type: Spontaneous
  Country: JP (occurrence: JP)
  Receive Date: 20130226
  Receipt Date: 20140204
  Transmission Date: 20141002
  Serious: Yes (Life-Threatening, Hospitalization, Disabling, Other)
  Sender: FDA-Public Use
  Company Number: PHHY2012JP060075

PATIENT
  Age: 81 Year
  Sex: Male

DRUGS (15)
  1. EQUA [Suspect]
     Indication: DIABETES MELLITUS
     Dosage: 100 MG, DAILY
     Route: 048
     Dates: start: 20120514, end: 20120625
  2. DIOVAN [Suspect]
     Indication: HYPERTENSION
     Dosage: 160 MG, DAILY
     Route: 048
  3. LOCHOL [Suspect]
     Indication: HYPERLIPIDAEMIA
     Dosage: 30 MG, DAILY
     Route: 048
  4. GLIMICRON [Suspect]
     Dosage: 20 MG, DAILY
     Route: 048
  5. METGLUCO [Suspect]
     Dosage: 750 MG, DAILY
     Route: 048
  6. ALOSITOL [Suspect]
     Dosage: 100 MG, DAILY
     Route: 048
  7. THEODUR [Suspect]
     Dosage: 400 MG, DAILY
     Route: 048
  8. HARNAL [Suspect]
     Dosage: 0.2 MG, DAILY
     Route: 048
  9. BISOLVON [Suspect]
     Dosage: 12 MG, DAILY
     Route: 048
  10. HERBESSER R [Suspect]
     Dosage: 100 MG, DAILY
     Route: 048
  11. LUPRAC [Suspect]
     Dosage: 4 MG, DAILY
     Route: 048
  12. TANATRIL [Suspect]
     Dosage: 5 MG, DAILY
     Route: 048
  13. EPADEL-S [Suspect]
     Dosage: 1800 MG, DAILY
     Route: 048
  14. TAKEPRON [Suspect]
     Dosage: 30 MG, DAILY
     Route: 048
  15. WARFARIN [Suspect]
     Dosage: 2.5 MG, DAILY
     Route: 048

REACTIONS (8)
  - Interstitial lung disease [Recovering/Resolving]
  - Disuse syndrome [Unknown]
  - Respiratory failure [Unknown]
  - Dyspnoea [Unknown]
  - Cough [Unknown]
  - Hypoxia [Unknown]
  - Rhabdomyolysis [Recovered/Resolved]
  - Chromaturia [Unknown]
